FAERS Safety Report 6432510-X (Version None)
Quarter: 2009Q4

REPORT INFORMATION
  Report Type: 
  Country: None (occurrence: None)
  Receive Date: 20091109
  Receipt Date: 20091028
  Transmission Date: 20100525
  Serious: Yes (Death, Hospitalization)
  Sender: FDA-Public Use
  Company Number: KR-PFIZER INC-2009284611

PATIENT
  Age: 67 Year
  Sex: Female
  Weight: 46 kg

DRUGS (11)
  1. VORICONAZOLE [Suspect]
     Indication: ASPERGILLOSIS
     Dosage: 276 MG, 2X/DAY
     Route: 042
     Dates: start: 20080801, end: 20080801
  2. VORICONAZOLE [Suspect]
     Dosage: 184 MG, 2X/DAY
     Route: 042
     Dates: start: 20080802, end: 20080812
  3. RANITIDINE HYDROCHLORIDE [Concomitant]
     Indication: ANTACID THERAPY
     Dosage: 100 MG, 2X/DAY
     Route: 048
     Dates: start: 20080712, end: 20080812
  4. DOPAMINE HYDROCHLORIDE [Concomitant]
     Indication: HYPOTENSION
     Dosage: 1600 MG, 1X/DAY
     Route: 041
     Dates: start: 20080805, end: 20080816
  5. POTASSIUM CHLORIDE [Concomitant]
     Indication: MINERAL SUPPLEMENTATION
     Dosage: 20- 30 ML, 1X/DAY
     Route: 041
     Dates: start: 20080714, end: 20080810
  6. POTASSIUM CHLORIDE [Concomitant]
     Dosage: 20- 30 ML, 1X/DAY
     Route: 041
     Dates: start: 20080714, end: 20080810
  7. CEFTEZOLE SODIUM [Concomitant]
     Indication: INFECTION PROPHYLAXIS
     Dosage: 2 G, 2X/DAY
     Route: 042
     Dates: start: 20080717, end: 20080812
  8. VALPROATE SODIUM [Concomitant]
     Indication: CONVULSION
     Dosage: 500 MG, 2X/DAY
     Route: 048
     Dates: start: 20080713, end: 20080816
  9. ALBUMIN (HUMAN) [Concomitant]
     Indication: BLOOD ALBUMIN
     Dosage: 100 ML, 1X/DAY
     Route: 042
     Dates: start: 20080717, end: 20080811
  10. OLIVE OIL/SOYA OIL [Concomitant]
     Indication: NUTRITIONAL SUPPORT
     Dosage: 1500 ML, 1X/DAY
     Route: 041
     Dates: start: 20080714, end: 20080811
  11. VALPROATE SODIUM [Concomitant]
     Dosage: 400 MG, 4X/DAY
     Route: 042
     Dates: start: 20080717, end: 20080807

REACTIONS (2)
  - CEREBRAL HAEMORRHAGE [None]
  - HYPERNATRAEMIA [None]
